FAERS Safety Report 13948362 (Version 4)
Quarter: 2018Q2

REPORT INFORMATION
  Report Type: Report from Study
  Country: DE (occurrence: DE)
  Receive Date: 20170908
  Receipt Date: 20180414
  Transmission Date: 20180711
  Serious: Yes (Other)
  Sender: FDA-Public Use
  Company Number: DE-ROCHE-1989990

PATIENT
  Sex: Male
  Weight: 78 kg

DRUGS (5)
  1. RANIBIZUMAB. [Suspect]
     Active Substance: RANIBIZUMAB
     Indication: RETINAL VEIN OCCLUSION
     Dosage: 0.5 MG, 1X, LEFT EYE
     Route: 031
     Dates: start: 20170420
  2. RANIBIZUMAB. [Suspect]
     Active Substance: RANIBIZUMAB
     Dosage: 0.5 MG, 1X, LEFT EYE
     Route: 031
     Dates: start: 20170515
  3. RANIBIZUMAB. [Suspect]
     Active Substance: RANIBIZUMAB
     Dosage: 0.5 MG, 1X, LEFT EYE
     Route: 031
     Dates: start: 20170720
  4. RANIBIZUMAB. [Suspect]
     Active Substance: RANIBIZUMAB
     Dosage: 0.5 MG, 1X, LEFT EYE
     Route: 031
     Dates: start: 20170622
  5. RANIBIZUMAB. [Suspect]
     Active Substance: RANIBIZUMAB
     Dosage: 0.5 MG, 1X, LEFT EYE
     Route: 031
     Dates: start: 20170831, end: 20170831

REACTIONS (3)
  - Retinal thickening [Recovering/Resolving]
  - Cystoid macular oedema [Recovering/Resolving]
  - Inappropriate schedule of drug administration [Unknown]

NARRATIVE: CASE EVENT DATE: 20170831
